FAERS Safety Report 8179315-X (Version None)
Quarter: 2012Q1

REPORT INFORMATION
  Report Type: 
  Country: None (occurrence: None)
  Receive Date: 20120229
  Receipt Date: 20120229
  Transmission Date: 20120608
  Serious: Yes (Other)
  Sender: FDA-Public Use
  Company Number: None

PATIENT
  Sex: Female
  Weight: 95.2554 kg

DRUGS (3)
  1. LEXAPRO [Suspect]
     Indication: DEPRESSION
     Dosage: 10MGS ONCE DAILY 7 DAYS
     Dates: start: 20110101, end: 20111201
  2. LEXAPRO [Suspect]
     Indication: STRESS
     Dosage: 10MGS ONCE DAILY 7 DAYS
     Dates: start: 20110101, end: 20111201
  3. LEXAPRO [Suspect]

REACTIONS (7)
  - MIGRAINE [None]
  - DIZZINESS [None]
  - DRUG INEFFECTIVE [None]
  - NAUSEA [None]
  - RENAL PAIN [None]
  - TREMOR [None]
  - RASH [None]
